FAERS Safety Report 20362122 (Version 2)
Quarter: 2022Q1

REPORT INFORMATION
  Report Type: Spontaneous
  Country: US (occurrence: US)
  Receive Date: 20220121
  Receipt Date: 20220303
  Transmission Date: 20220423
  Serious: Yes (Other)
  Sender: FDA-Public Use
  Company Number: US-JNJFOC-20220127503

PATIENT
  Age: 75 Year
  Sex: Male

DRUGS (5)
  1. XARELTO [Interacting]
     Active Substance: RIVAROXABAN
     Indication: Thrombosis
     Route: 048
  2. XTANDI [Suspect]
     Active Substance: ENZALUTAMIDE
     Indication: Prostate cancer
     Route: 048
  3. LUPRON [Concomitant]
     Active Substance: LEUPROLIDE ACETATE
  4. ROSUVASTATIN [Concomitant]
     Active Substance: ROSUVASTATIN
  5. LEVOTHYROXINE [Concomitant]
     Active Substance: LEVOTHYROXINE

REACTIONS (2)
  - Retinal vascular thrombosis [Recovered/Resolved]
  - Drug interaction [Recovered/Resolved]

NARRATIVE: CASE EVENT DATE: 20200724
